FAERS Safety Report 12978824 (Version 1)
Quarter: 2016Q4

REPORT INFORMATION
  Report Type: Spontaneous
  Country: US (occurrence: US)
  Receive Date: 20161128
  Receipt Date: 20161128
  Transmission Date: 20170207
  Serious: No
  Sender: FDA-Public Use
  Company Number: US-CELGENEUS-USA-2016115036

PATIENT
  Sex: Male

DRUGS (1)
  1. REVLIMID [Suspect]
     Active Substance: LENALIDOMIDE
     Indication: PLASMA CELL MYELOMA
     Dosage: 15 MG ONCE DAILY
     Route: 048
     Dates: start: 201603

REACTIONS (3)
  - Burning sensation [Unknown]
  - Skin exfoliation [Unknown]
  - Laboratory test abnormal [Unknown]
